FAERS Safety Report 25758793 (Version 1)
Quarter: 2025Q3

REPORT INFORMATION
  Report Type: Spontaneous
  Country: GB (occurrence: GB)
  Receive Date: 20250904
  Receipt Date: 20250904
  Transmission Date: 20251021
  Serious: Yes (Other)
  Sender: NORDIC PHARMA
  Company Number: None

PATIENT
  Sex: Female

DRUGS (1)
  1. METHOTREXATE [Suspect]
     Active Substance: METHOTREXATE

REACTIONS (4)
  - Hypertension [Unknown]
  - Hospitalisation [Unknown]
  - Chronic obstructive pulmonary disease [Unknown]
  - Oxygen saturation decreased [Unknown]
